FAERS Safety Report 4872501-3 (Version None)
Quarter: 2006Q1

REPORT INFORMATION
  Report Type: 
  Country: None (occurrence: None)
  Receive Date: 20060104
  Receipt Date: 19990707
  Transmission Date: 20060701
  Serious: Yes (Hospitalization)
  Sender: FDA-Public Use
  Company Number: FI-ABBOTT-99P-184-0007611-02

PATIENT
  Sex: Male

DRUGS (5)
  1. FENOFIBRATE [Suspect]
     Indication: DYSLIPIDAEMIA
     Route: 048
     Dates: start: 19980824, end: 19981105
  2. TENOBLOCK [Concomitant]
     Indication: DRUG USE FOR UNKNOWN INDICATION
     Route: 048
     Dates: start: 19970101
  3. ZYRTEC [Concomitant]
     Indication: DRUG USE FOR UNKNOWN INDICATION
     Route: 048
     Dates: start: 19981101
  4. ATARAX [Concomitant]
     Indication: DRUG USE FOR UNKNOWN INDICATION
     Route: 048
     Dates: start: 19981101
  5. PRIMASPAN [Concomitant]
     Indication: DRUG USE FOR UNKNOWN INDICATION
     Route: 048
     Dates: end: 19981101

REACTIONS (2)
  - AMNESIA [None]
  - HEADACHE [None]
